FAERS Safety Report 5829008-6 (Version None)
Quarter: 2008Q3

REPORT INFORMATION
  Report Type: 
  Country: None (occurrence: None)
  Receive Date: 20080731
  Receipt Date: 20080728
  Transmission Date: 20090109
  Serious: Yes (Other)
  Sender: FDA-Public Use
  Company Number: PHBS2008US05224

PATIENT
  Age: 12 Year
  Sex: Male

DRUGS (2)
  1. OXCARBAZEPINE [Suspect]
     Indication: CONVULSION
  2. ACETYLSALICYLIC ACID SRT [Concomitant]
     Dosage: LOW DOSE

REACTIONS (6)
  - ABNORMAL BEHAVIOUR [None]
  - CONVULSION [None]
  - GROWTH HORMONE DEFICIENCY [None]
  - GROWTH RETARDATION [None]
  - HYPOTHYROIDISM [None]
  - THYROXINE FREE DECREASED [None]
